FAERS Safety Report 17804585 (Version 1)
Quarter: 2020Q2

REPORT INFORMATION
  Report Type: Spontaneous
  Country: AU (occurrence: AU)
  Receive Date: 20200519
  Receipt Date: 20200519
  Transmission Date: 20200714
  Serious: Yes (Hospitalization, Other)
  Sender: FDA-Public Use
  Company Number: AU-SHIRE-AU202016129

PATIENT

DRUGS (4)
  1. ABATACEPT [Suspect]
     Active Substance: ABATACEPT
     Indication: CTLA4 DEFICIENCY
     Dosage: 2 GRAM, EVERY 4 WK
     Route: 042
  2. VALGANCICLOVIR. [Concomitant]
     Active Substance: VALGANCICLOVIR
     Indication: IMMUNE SYSTEM DISORDER
  3. VEDOLIZUMAB [Suspect]
     Active Substance: VEDOLIZUMAB
     Indication: CTLA4 DEFICIENCY
     Dosage: 300 MILLIGRAM, EVERY 8 WK
     Route: 042
  4. HUMAN NORMAL IMMUNOGLOBULIN [Suspect]
     Active Substance: HUMAN IMMUNOGLOBULIN G
     Indication: IMMUNE SYSTEM DISORDER
     Dosage: 25 GRAM, 1X A MONTH
     Route: 042
     Dates: start: 2006

REACTIONS (3)
  - Disease progression [Unknown]
  - Adenocarcinoma gastric [Unknown]
  - Gastric cancer [Unknown]

NARRATIVE: CASE EVENT DATE: 2019
